FAERS Safety Report 8215529 (Version 2)
Quarter: 2013Q2

REPORT INFORMATION
  Report Type: Spontaneous
  Country: US (occurrence: US)
  Receive Date: 20111031
  Receipt Date: 20130510
  Transmission Date: 20140414
  Serious: No
  Sender: FDA-Public Use
  Company Number: US-BIOGENIDEC-2011BI040291

PATIENT
  Age: 35 Year
  Sex: Female

DRUGS (3)
  1. AVONEX [Suspect]
     Indication: MULTIPLE SCLEROSIS
     Route: 030
     Dates: start: 20110527, end: 20111013
  2. PREDNISONE [Concomitant]
     Indication: PREMEDICATION
  3. BLOOD PRESSURE PILL (NOS) [Concomitant]
     Indication: HYPERTENSION
     Dates: start: 2002

REACTIONS (7)
  - Injury associated with device [Recovered/Resolved]
  - Vomiting projectile [Recovered/Resolved]
  - Muscle spasms [Not Recovered/Not Resolved]
  - Arthralgia [Recovered/Resolved]
  - Headache [Recovered/Resolved]
  - Influenza like illness [Recovered/Resolved]
  - Myalgia [Recovered/Resolved]
